FAERS Safety Report 9585028 (Version 1)
Quarter: 2013Q4

REPORT INFORMATION
  Report Type: Spontaneous
  Country: US (occurrence: US)
  Receive Date: 20131002
  Receipt Date: 20131002
  Transmission Date: 20140711
  Serious: No
  Sender: FDA-Public Use
  Company Number: US-AMGEN-USASP2013062245

PATIENT
  Age: 52 Year
  Sex: Female
  Weight: 133.79 kg

DRUGS (14)
  1. ENBREL [Suspect]
     Indication: PRODUCT USED FOR UNKNOWN INDICATION
     Dosage: 50 MG, QWK
     Route: 058
  2. TOPIRAMATE [Concomitant]
     Dosage: 25 MG, UNK
  3. OMEPRAZOLE [Concomitant]
     Dosage: 10 MG, UNK
  4. XANAX [Concomitant]
     Dosage: 0.5 MG, UNK
  5. AMITRIPTYLIN [Concomitant]
     Dosage: 10 MG, UNK
  6. ZOFRAN                             /00955301/ [Concomitant]
     Dosage: 4 MG, UNK
  7. METHOTREXATE [Concomitant]
     Dosage: 2.5 MG, UNK
  8. CITALOPRAM [Concomitant]
     Dosage: 10 MG, UNK
  9. GABAPENTIN [Concomitant]
     Dosage: 100 MG, UNK
  10. FOLIC ACID [Concomitant]
     Dosage: UNK
  11. VITAMIN D                          /00107901/ [Concomitant]
     Dosage: 1000 UNIT, UNK
  12. PERCOCET                           /00867901/ [Concomitant]
     Dosage: 5-325 MG, UNK
  13. ADVAIR [Concomitant]
     Dosage: 250/50, UNK
  14. ALBUTEROL                          /00139501/ [Concomitant]
     Dosage: 90 MUG, UNK

REACTIONS (1)
  - Asthma [Unknown]
